FAERS Safety Report 5479005-8 (Version None)
Quarter: 2007Q4

REPORT INFORMATION
  Report Type: 
  Country: None (occurrence: None)
  Receive Date: 20071006
  Receipt Date: 20070926
  Transmission Date: 20080405
  Serious: Yes (Other)
  Sender: FDA-Public Use
  Company Number: US-PFIZER INC-2007080535

PATIENT
  Sex: Male

DRUGS (1)
  1. GEODON [Suspect]

REACTIONS (5)
  - FUNGAL INFECTION [None]
  - HEPATIC CIRRHOSIS [None]
  - HYPERPARATHYROIDISM [None]
  - JOINT INJURY [None]
  - LEUKOPENIA [None]
